FAERS Safety Report 8123168-2 (Version None)
Quarter: 2012Q1

REPORT INFORMATION
  Report Type: 
  Country: None (occurrence: None)
  Receive Date: 20120208
  Receipt Date: 20120131
  Transmission Date: 20120608
  Serious: Yes (Hospitalization)
  Sender: FDA-Public Use
  Company Number: BR-MEDIMMUNE-MEDI-0013168

PATIENT
  Sex: Male
  Weight: 7.8 kg

DRUGS (7)
  1. FOLIC ACID [Concomitant]
     Route: 048
     Dates: start: 20100424
  2. SYNAGIS [Suspect]
     Route: 030
     Dates: start: 20110411, end: 20110411
  3. BUDESONIDE [Concomitant]
     Route: 048
     Dates: start: 20100424, end: 20110418
  4. UNKNOWN POLIVITAMIN [Concomitant]
     Route: 048
     Dates: start: 20100424
  5. SYNAGIS [Suspect]
     Route: 030
     Dates: start: 20110801, end: 20110801
  6. ALBUTEROL SULFATE AUTOHALER [Concomitant]
     Route: 048
     Dates: start: 20100424, end: 20110418
  7. DOMPERIDONE [Concomitant]
     Route: 048
     Dates: start: 20100424

REACTIONS (8)
  - BRONCHIOLITIS [None]
  - ASTHMA [None]
  - INFLUENZA [None]
  - DYSPNOEA [None]
  - COUGH [None]
  - INCREASED UPPER AIRWAY SECRETION [None]
  - INCREASED BRONCHIAL SECRETION [None]
  - NASOPHARYNGITIS [None]
